FAERS Safety Report 9410047 (Version 2)
Quarter: 2013Q2

REPORT INFORMATION
  Report Type: Spontaneous
  Country: US (occurrence: None)
  Receive Date: 20130621
  Receipt Date: 20130628
  Transmission Date: 20140414
  Serious: Yes (Other)
  Sender: FDA-Public Use
  Company Number: CA13-0290

PATIENT
  Age: 48 Year
  Sex: Female
  Weight: 62 kg

DRUGS (1)
  1. CORTROSYN [Suspect]
     Indication: DIAGNOSTIC PROCEDURE
     Dosage: RECONSTITUTED 0.25 MG, ONCE, INTRAMUSCULAR INJECTION IN LEFT ARM
     Dates: start: 20130524, end: 20130524

REACTIONS (6)
  - Hypoaesthesia [None]
  - Panic attack [None]
  - Paralysis [None]
  - Chest pain [None]
  - Malaise [None]
  - Dysarthria [None]
